FAERS Safety Report 6574803-1 (Version None)
Quarter: 2010Q1

REPORT INFORMATION
  Report Type: 
  Country: None (occurrence: None)
  Receive Date: 20100209
  Receipt Date: 20100125
  Transmission Date: 20100710
  Serious: Yes (Disabling, Other)
  Sender: FDA-Public Use
  Company Number: PHEH2008US08678

PATIENT
  Sex: Female

DRUGS (19)
  1. ZOMETA [Suspect]
     Indication: BONE DENSITY ABNORMAL
     Route: 042
  2. FOSAMAX [Suspect]
  3. LEXAPRO [Concomitant]
  4. MICARDIS [Concomitant]
  5. DITROPAN XL [Concomitant]
  6. VIVELLE-DOT [Concomitant]
  7. SYNTHROID [Concomitant]
  8. PRAVACHOL [Concomitant]
  9. COMBIVENT                               /GFR/ [Concomitant]
  10. SUDAFED 12 HOUR [Concomitant]
  11. THYROID TAB [Concomitant]
  12. DOXEPIN HCL [Concomitant]
  13. WELLBUTRIN [Concomitant]
  14. ADVAIR DISKUS 100/50 [Concomitant]
  15. LASIX [Concomitant]
  16. AGGRENOX [Concomitant]
  17. TESSALON [Concomitant]
  18. PREMARIN [Concomitant]
  19. PLAVIX [Concomitant]

REACTIONS (20)
  - ABSCESS [None]
  - ANHEDONIA [None]
  - ANXIETY [None]
  - CHEST PAIN [None]
  - FAECAL INCONTINENCE [None]
  - INJURY [None]
  - LIP AND/OR ORAL CAVITY CANCER [None]
  - LIP DISCOLOURATION [None]
  - LUNG LOBECTOMY [None]
  - LUNG NEOPLASM MALIGNANT [None]
  - MAMMOPLASTY [None]
  - MENOPAUSE [None]
  - NEUROPATHY PERIPHERAL [None]
  - OSTEONECROSIS [None]
  - OSTEOPENIA [None]
  - PAIN [None]
  - THORACOTOMY [None]
  - TIBIA FRACTURE [None]
  - TOOTH DISORDER [None]
  - URINARY INCONTINENCE [None]
